FAERS Safety Report 4705100-4 (Version None)
Quarter: 2005Q3

REPORT INFORMATION
  Report Type: 
  Country: None (occurrence: None)
  Receive Date: 20050701
  Receipt Date: 20050621
  Transmission Date: 20060218
  Serious: Yes (Other)
  Sender: FDA-Public Use
  Company Number: DE-JNJFOC-20050606243

PATIENT
  Age: 60 Year
  Sex: Female

DRUGS (3)
  1. RISPERDAL [Suspect]
     Route: 049
  2. RISPERDAL CONSTA [Suspect]
     Route: 030
  3. RISPERDAL CONSTA [Suspect]
     Route: 030

REACTIONS (5)
  - CEREBELLAR ATROPHY [None]
  - CONDITION AGGRAVATED [None]
  - GAIT DISTURBANCE [None]
  - POVERTY OF SPEECH [None]
  - SCHIZOPHRENIA, PARANOID TYPE [None]
